FAERS Safety Report 18005554 (Version 1)
Quarter: 2020Q3

REPORT INFORMATION
  Report Type: Other
  Country: DE (occurrence: DE)
  Receive Date: 20200710
  Receipt Date: 20200710
  Transmission Date: 20201103
  Serious: Yes (Hospitalization)
  Sender: FDA-Public Use
  Company Number: DE-LUPIN PHARMACEUTICALS INC.-2020-03182

PATIENT
  Age: 25 Month
  Sex: Male
  Weight: 13 kg

DRUGS (1)
  1. LEVETIRACETAM TABLETS [Suspect]
     Active Substance: LEVETIRACETAM
     Indication: MEDICATION ERROR
     Dosage: UNKNOWN DOSE
     Route: 048
     Dates: start: 20200201

REACTIONS (4)
  - Accidental exposure to product by child [Unknown]
  - Product storage error [Unknown]
  - No adverse event [Unknown]
  - Product administration error [Unknown]

NARRATIVE: CASE EVENT DATE: 20200201
